FAERS Safety Report 5676537-4 (Version None)
Quarter: 2008Q1

REPORT INFORMATION
  Report Type: 
  Country: None (occurrence: None)
  Receive Date: 20080321
  Receipt Date: 20080321
  Transmission Date: 20080703
  Serious: No
  Sender: FDA-Public Use
  Company Number: None

PATIENT
  Age: 77 Year
  Sex: Female

DRUGS (2)
  1. DIGOXIN [Suspect]
     Indication: CARDIAC DISORDER
     Dosage: 0.125MG 1 TAB MON,WED,FRI 2 TAB SUN. ORAL
     Route: 048
     Dates: start: 20080311
  2. DIGOXIN [Suspect]
     Indication: CARDIAC DISORDER
     Dosage: 0.125MG 1 TAB MON,WED,FRI 2 TAB SUN. ORAL
     Route: 048
     Dates: start: 20080315

REACTIONS (2)
  - MUSCLE SPASMS [None]
  - PAIN IN EXTREMITY [None]
